FAERS Safety Report 6578377-0 (Version None)
Quarter: 2010Q1

REPORT INFORMATION
  Report Type: 
  Country: None (occurrence: None)
  Receive Date: 20100211
  Receipt Date: 20100203
  Transmission Date: 20100710
  Serious: Yes (Other)
  Sender: FDA-Public Use
  Company Number: AU-PFIZER INC-2010015147

PATIENT
  Age: 49 Year
  Sex: Female

DRUGS (3)
  1. CHAMPIX [Suspect]
  2. AMLODIPINE [Concomitant]
     Indication: BLOOD PRESSURE
     Dosage: 10 MG, UNK
  3. SPIRACTIN [Concomitant]
     Indication: FLUID RETENTION
     Dosage: 2X25MG

REACTIONS (7)
  - ABNORMAL DREAMS [None]
  - DEPRESSION [None]
  - FATIGUE [None]
  - FEELING ABNORMAL [None]
  - FLUID RETENTION [None]
  - INSOMNIA [None]
  - MOOD ALTERED [None]
